FAERS Safety Report 25627242 (Version 1)
Quarter: 2025Q3

REPORT INFORMATION
  Report Type: Spontaneous
  Country: EU (occurrence: EU)
  Receive Date: 20250731
  Receipt Date: 20250731
  Transmission Date: 20251021
  Serious: Yes (Other)
  Sender: MYLAN
  Company Number: EU-MYLANLABS-2025M1064276

PATIENT
  Age: 13 Year
  Sex: Male

DRUGS (9)
  1. ACETAMINOPHEN [Suspect]
     Active Substance: ACETAMINOPHEN
     Indication: Neuralgia
     Dosage: 1000 MILLIGRAM, BID
  2. GABAPENTIN [Suspect]
     Active Substance: GABAPENTIN
     Indication: Neuralgia
     Dosage: 100 MILLIGRAM, BID
     Dates: start: 201908
  3. OXYCODONE [Suspect]
     Active Substance: OXYCODONE
     Indication: Neuralgia
     Dosage: 0.5 MILLIGRAM, QD
     Dates: start: 201908
  4. CLOBETASOL [Suspect]
     Active Substance: CLOBETASOL
     Indication: Paronychia
     Dosage: UNK UNK, BID
  5. MUPIROCIN [Suspect]
     Active Substance: MUPIROCIN
     Indication: Paronychia
     Dosage: UNK UNK, BID
  6. PREDNISONE [Concomitant]
     Active Substance: PREDNISONE
     Indication: Paronychia
     Dosage: 5 MILLIGRAM, QD
  7. PREDNISONE [Concomitant]
     Active Substance: PREDNISONE
     Dosage: 2.5 MILLIGRAM, QD
  8. AMOXICILLIN\CLAVULANIC ACID [Concomitant]
     Active Substance: AMOXICILLIN\CLAVULANIC ACID
     Indication: Paronychia
     Dosage: 1 GRAM, BID
  9. SELUMETINIB [Concomitant]
     Active Substance: SELUMETINIB
     Indication: Neurofibromatosis

REACTIONS (1)
  - Drug ineffective [Unknown]
